FAERS Safety Report 10272373 (Version 1)
Quarter: 2014Q2

REPORT INFORMATION
  Report Type: Spontaneous
  Country: CA (occurrence: None)
  Receive Date: 20140630
  Receipt Date: 20140630
  Transmission Date: 20141212
  Serious: No
  Sender: FDA-Public Use
  Company Number: None

PATIENT
  Age: 31 Year
  Sex: Male
  Weight: 98.88 kg

DRUGS (2)
  1. TRAMADOL [Suspect]
     Indication: PAIN
     Dosage: 1 TABLET EVERY 4 HOURS
     Route: 048
     Dates: start: 20140624, end: 20140629
  2. TRAMADOL [Suspect]
     Indication: KNEE OPERATION
     Dosage: 1 TABLET EVERY 4 HOURS
     Route: 048
     Dates: start: 20140624, end: 20140629

REACTIONS (11)
  - Dizziness [None]
  - Dizziness [None]
  - Confusional state [None]
  - Constipation [None]
  - Hot flush [None]
  - Hyperhidrosis [None]
  - Hiccups [None]
  - Dysuria [None]
  - Fatigue [None]
  - Memory impairment [None]
  - Abnormal dreams [None]
